FAERS Safety Report 8482917 (Version 4)
Quarter: 2014Q2

REPORT INFORMATION
  Report Type: Spontaneous
  Country: US (occurrence: US)
  Receive Date: 20120329
  Receipt Date: 20140616
  Transmission Date: 20141212
  Serious: Yes (Hospitalization, Other)
  Sender: FDA-Public Use
  Company Number: US-JNJFOC-20120311051

PATIENT
  Age: 69 Year
  Sex: Male
  Weight: 79.91 kg

DRUGS (4)
  1. DOXIL [Suspect]
     Indication: PLASMA CELL MYELOMA
     Dosage: DAY 1, 4, 8 AND 11
     Route: 042
     Dates: start: 20110426, end: 20110721
  2. BORTEZOMIB [Suspect]
     Indication: PLASMA CELL MYELOMA
     Route: 042
     Dates: start: 20110426, end: 20110725
  3. DEXAMETHASONE [Suspect]
     Indication: PLASMA CELL MYELOMA
     Route: 042
     Dates: start: 20110426, end: 20110621
  4. DEXAMETHASONE [Suspect]
     Indication: PLASMA CELL MYELOMA
     Route: 048
     Dates: start: 20110426, end: 20110721

REACTIONS (8)
  - Nephropathy [Not Recovered/Not Resolved]
  - Myocardial infarction [Recovering/Resolving]
  - Cerebrovascular accident [Recovered/Resolved]
  - Encephalopathy [Recovering/Resolving]
  - Renal cell carcinoma [Unknown]
  - Amyloidosis [Unknown]
  - Hypertension [Unknown]
  - Urinary tract infection bacterial [Unknown]
